FAERS Safety Report 8964143 (Version 1)
Quarter: 2012Q4

REPORT INFORMATION
  Report Type: 
  Country: US (occurrence: US)
  Receive Date: 20121214
  Receipt Date: 20121214
  Transmission Date: 20130627
  Serious: No
  Sender: FDA-Public Use
  Company Number: US-PFIZER INC-2012313639

PATIENT
  Age: 81 Year
  Sex: Male
  Weight: 77.1 kg

DRUGS (7)
  1. ZOLOFT [Suspect]
     Indication: DEPRESSION
     Dosage: 25 mg, 2x/day
     Route: 048
     Dates: start: 201209, end: 20121016
  2. ZOLOFT [Suspect]
     Dosage: 50 mg, 2x/day
     Route: 048
     Dates: start: 20121017, end: 20121111
  3. ZOLOFT [Suspect]
     Dosage: 100 mg, 2x/day
     Route: 048
     Dates: start: 20121112
  4. LIPITOR [Concomitant]
     Indication: HIGH CHOLESTEROL
     Dosage: UNK
  5. FLOMAX [Concomitant]
     Indication: PROSTATIC DISORDER NOS
     Dosage: UNK
  6. AVODART [Concomitant]
     Indication: PROSTATIC DISORDER NOS
     Dosage: UNK
  7. BENICAR HCT [Concomitant]
     Indication: BLOOD PRESSURE HIGH
     Dosage: UNK

REACTIONS (2)
  - Dyskinesia [Unknown]
  - Therapeutic response unexpected [Unknown]
